FAERS Safety Report 13748378 (Version 2)
Quarter: 2017Q3

REPORT INFORMATION
  Report Type: Spontaneous
  Country: US (occurrence: US)
  Receive Date: 20170713
  Receipt Date: 20170804
  Transmission Date: 20171127
  Serious: Yes (Hospitalization)
  Sender: FDA-Public Use
  Company Number: US-PFIZER INC-2017303369

PATIENT
  Age: 75 Year
  Sex: Female
  Weight: 54.43 kg

DRUGS (4)
  1. DULOXETINE. [Concomitant]
     Active Substance: DULOXETINE
     Dosage: UNK UNK, 1X/DAY (BEDTIME)
     Route: 048
  2. LYRICA [Suspect]
     Active Substance: PREGABALIN
     Indication: NEURALGIA
     Dosage: 25 MG, 2X/DAY
     Route: 048
     Dates: start: 20170625
  3. LYRICA [Suspect]
     Active Substance: PREGABALIN
     Indication: PUDENDAL CANAL SYNDROME
  4. TOPROL XL [Concomitant]
     Active Substance: METOPROLOL SUCCINATE
     Indication: CARDIOMEGALY
     Dosage: 25 MG, 1X/DAY
     Route: 048

REACTIONS (4)
  - Blood pressure abnormal [Recovered/Resolved]
  - Headache [Recovering/Resolving]
  - Dysuria [Recovered/Resolved]
  - Malaise [Recovered/Resolved]
